FAERS Safety Report 8675760 (Version 2)
Quarter: 2012Q4

REPORT INFORMATION
  Report Type: 
  Country: US (occurrence: US)
  Receive Date: 20120720
  Receipt Date: 20120910
  Transmission Date: 20130627
  Serious: Yes (Other)
  Sender: FDA-Public Use
  Company Number: US-ASTRAZENECA-2012SE47980

PATIENT
  Age: 65 Year
  Sex: Female

DRUGS (9)
  1. SYMBICORT [Suspect]
     Indication: CHRONIC OBSTRUCTIVE PULMONARY DISEASE
     Dosage: 160/4.5 MCG, 320 MCG 2 PUFFS BID
     Route: 055
     Dates: start: 201112
  2. SYMBICORT [Suspect]
     Indication: ASTHMA
     Dosage: 160/4.5 MCG, 320 MCG 2 PUFFS BID
     Route: 055
     Dates: start: 201112
  3. SYMBICORT [Suspect]
     Indication: CHRONIC OBSTRUCTIVE PULMONARY DISEASE
     Dosage: 160/4.5 MCG, 320 MCG 2 PUFFS BID
     Route: 055
     Dates: start: 20120619, end: 201207
  4. SYMBICORT [Suspect]
     Indication: ASTHMA
     Dosage: 160/4.5 MCG, 320 MCG 2 PUFFS BID
     Route: 055
     Dates: start: 20120619, end: 201207
  5. SYMBICORT [Suspect]
     Indication: CHRONIC OBSTRUCTIVE PULMONARY DISEASE
     Dosage: 160/4.5 MCG, 320 MCG 1 PUFFS BID TO CONSERVE HER MEDICATION
     Route: 055
     Dates: start: 201207, end: 20120711
  6. SYMBICORT [Suspect]
     Indication: ASTHMA
     Dosage: 160/4.5 MCG, 320 MCG 1 PUFFS BID TO CONSERVE HER MEDICATION
     Route: 055
     Dates: start: 201207, end: 20120711
  7. SYMBICORT [Suspect]
     Indication: CHRONIC OBSTRUCTIVE PULMONARY DISEASE
     Dosage: 160/4.5 MCG, 320 MCG 2 PUFFS BID
     Route: 055
  8. SYMBICORT [Suspect]
     Indication: ASTHMA
     Dosage: 160/4.5 MCG, 320 MCG 2 PUFFS BID
     Route: 055
  9. URSODIOL [Concomitant]
     Indication: BILIARY CIRRHOSIS PRIMARY
     Route: 048

REACTIONS (3)
  - Lung neoplasm [Unknown]
  - Dyspnoea [Not Recovered/Not Resolved]
  - Intentional drug misuse [Recovered/Resolved]
